FAERS Safety Report 5003958-5 (Version None)
Quarter: 2006Q2

REPORT INFORMATION
  Report Type: 
  Country: None (occurrence: None)
  Receive Date: 20060517
  Receipt Date: 20060223
  Transmission Date: 20061013
  Serious: Yes (Other)
  Sender: FDA-Public Use
  Company Number: PHEH2006US02641

PATIENT
  Age: 56 Year
  Sex: Male
  Weight: 102.04 kg

DRUGS (8)
  1. ACTIGALL [Concomitant]
     Dosage: 300 MG, BID
     Dates: start: 20051021
  2. CELLCEPT [Concomitant]
     Dosage: 500X2
     Dates: start: 20051021, end: 20060207
  3. CELLCEPT [Concomitant]
     Dosage: 500 MG, BID
  4. PREDNISONE TAB [Concomitant]
     Dosage: 60 MG, QD
     Dates: start: 20051021, end: 20051115
  5. PREDNISONE TAB [Concomitant]
     Dosage: 30 MG, UNK
  6. BACTRIM DS [Suspect]
     Dosage: UNK, BID
     Dates: start: 20050323, end: 20060206
  7. VALTREX [Concomitant]
     Dosage: 500 MG, TID
  8. EXJADE [Suspect]
     Indication: SERUM FERRITIN INCREASED
     Dosage: 1750 MG, QD
     Dates: start: 20051231, end: 20060207

REACTIONS (1)
  - BLOOD BILIRUBIN INCREASED [None]
